FAERS Safety Report 18685609 (Version 2)
Quarter: 2021Q1

REPORT INFORMATION
  Report Type: Spontaneous
  Country: US (occurrence: US)
  Receive Date: 20201230
  Receipt Date: 20210201
  Transmission Date: 20210419
  Serious: No
  Sender: FDA-Public Use
  Company Number: US-BAYER-2020-286849

PATIENT
  Age: 49 Year
  Sex: Male

DRUGS (1)
  1. ALEVE [Suspect]
     Active Substance: NAPROXEN SODIUM
     Indication: PAIN
     Dosage: 1 DF
     Route: 048
     Dates: start: 20201229, end: 20201229

REACTIONS (2)
  - Product lot number issue [None]
  - Expired product administered [Unknown]

NARRATIVE: CASE EVENT DATE: 20201229
